FAERS Safety Report 17337842 (Version 1)
Quarter: 2020Q1

REPORT INFORMATION
  Report Type: Spontaneous
  Country: JP (occurrence: JP)
  Receive Date: 20200129
  Receipt Date: 20200129
  Transmission Date: 20200409
  Serious: Yes (Disabling, Other)
  Sender: FDA-Public Use
  Company Number: JP-GLAXOSMITHKLINE-A20020029

PATIENT
  Age: 0 Day
  Sex: Female

DRUGS (5)
  1. RANITIDINE HYDROCHLORIDE. [Suspect]
     Active Substance: RANITIDINE HYDROCHLORIDE
     Indication: ANAESTHETIC PREMEDICATION
     Dosage: 5 MG, QD
     Route: 064
     Dates: start: 20011211, end: 20011211
  2. CEFMETAZON [Concomitant]
     Active Substance: CEFMETAZOLE SODIUM
     Indication: SKIN TEST
     Dosage: UNK UNK, QD
     Route: 064
     Dates: start: 20011211, end: 20011211
  3. BOSMIN [Concomitant]
     Active Substance: EPINEPHRINE
     Dosage: 0.5 DF, QID
     Route: 064
     Dates: start: 20011211, end: 20011211
  4. EPHEDRINE. [Concomitant]
     Active Substance: EPHEDRINE
     Dosage: 20 MG, QD
     Route: 064
     Dates: start: 20011211, end: 20011211
  5. SAXIZON [Concomitant]
     Active Substance: HYDROCORTISONE SODIUM SUCCINATE
     Dosage: 300 MG, QD
     Route: 064
     Dates: start: 20011211, end: 20011211

REACTIONS (7)
  - Psychomotor skills impaired [Unknown]
  - Cardiac output decreased [Unknown]
  - Cerebral palsy [Unknown]
  - Hypoxic-ischaemic encephalopathy [Unknown]
  - Developmental delay [Unknown]
  - Seizure [Unknown]
  - Asphyxia [Unknown]

NARRATIVE: CASE EVENT DATE: 20011211
